FAERS Safety Report 4799720-9 (Version None)
Quarter: 2005Q4

REPORT INFORMATION
  Report Type: 
  Country: None (occurrence: None)
  Receive Date: 20051006
  Receipt Date: 20051006
  Transmission Date: 20060501
  Serious: Yes (Life-Threatening, Hospitalization)
  Sender: FDA-Public Use
  Company Number: None

PATIENT
  Sex: Female
  Weight: 103 kg

DRUGS (10)
  1. IFOSFAMIDE [Suspect]
     Dosage: 5225MG Q 12 HOURS IV
     Route: 042
  2. DOCUSATE [Concomitant]
  3. LANSOPRAZOLE [Concomitant]
  4. DEXAMETHASONE [Concomitant]
  5. LORAZEPAM [Concomitant]
  6. ONDANESTRON [Concomitant]
  7. ACETAMINOPHEN [Concomitant]
  8. TPN [Concomitant]
  9. MESNA [Concomitant]
  10. FUROSEMIDE [Concomitant]

REACTIONS (5)
  - INAPPROPRIATE ANTIDIURETIC HORMONE SECRETION [None]
  - LOSS OF CONSCIOUSNESS [None]
  - LYMPHOMA [None]
  - MALIGNANT NEOPLASM PROGRESSION [None]
  - MENTAL STATUS CHANGES [None]
